FAERS Safety Report 9323259 (Version 2)
Quarter: 2013Q3

REPORT INFORMATION
  Report Type: Spontaneous
  Country: DE (occurrence: DE)
  Receive Date: 20130603
  Receipt Date: 20130711
  Transmission Date: 20140515
  Serious: Yes (Other)
  Sender: FDA-Public Use
  Company Number: DE-CELGENEUS-062-50794-13053234

PATIENT
  Sex: 0

DRUGS (4)
  1. VIDAZA [Suspect]
     Indication: ACUTE MYELOID LEUKAEMIA
     Route: 065
  2. VIDAZA [Suspect]
     Indication: MYELODYSPLASTIC SYNDROME
  3. DONOR LYMPHOCYTES [Concomitant]
     Indication: ACUTE MYELOID LEUKAEMIA
     Route: 065
  4. DONOR LYMPHOCYTES [Concomitant]
     Indication: MYELODYSPLASTIC SYNDROME

REACTIONS (1)
  - Chronic graft versus host disease in skin [Not Recovered/Not Resolved]
